FAERS Safety Report 9594721 (Version 1)
Quarter: 2013Q3

REPORT INFORMATION
  Report Type: Spontaneous
  Country: US (occurrence: None)
  Receive Date: 20130927
  Receipt Date: 20130927
  Transmission Date: 20140515
  Serious: Yes (Hospitalization)
  Sender: FDA-Public Use
  Company Number: CABO-13003112

PATIENT
  Age: 44 Year
  Sex: Male

DRUGS (1)
  1. COMETRIQ [Suspect]
     Indication: BRAIN NEOPLASM MALIGNANT
     Dosage: 140 MG, QD, ORAL
     Route: 048
     Dates: start: 20130711, end: 20130725

REACTIONS (1)
  - Pneumonia [None]
